FAERS Safety Report 7443542-7 (Version None)
Quarter: 2011Q2

REPORT INFORMATION
  Report Type: 
  Country: None (occurrence: None)
  Receive Date: 20110428
  Receipt Date: 20110420
  Transmission Date: 20111010
  Serious: Yes (Other)
  Sender: FDA-Public Use
  Company Number: FR-GENENTECH-317337

PATIENT
  Sex: Male
  Weight: 2.3 kg

DRUGS (1)
  1. MABTHERA [Suspect]
     Indication: THROMBOCYTOPENIA
     Dosage: UNK

REACTIONS (1)
  - LYMPHOPENIA [None]
